FAERS Safety Report 24640958 (Version 4)
Quarter: 2025Q4

REPORT INFORMATION
  Report Type: Report from Study
  Country: CA (occurrence: CA)
  Receive Date: 20241120
  Receipt Date: 20251112
  Transmission Date: 20260117
  Serious: Yes (Hospitalization, Other)
  Sender: TAKEDA
  Company Number: CA-TAKEDA-2024TUS021107

PATIENT
  Age: 60 Year
  Sex: Female

DRUGS (10)
  1. VEDOLIZUMAB [Suspect]
     Active Substance: VEDOLIZUMAB
     Indication: Colitis ulcerative
     Dosage: 300 MILLIGRAM
  2. METHOTREXATE [Suspect]
     Active Substance: METHOTREXATE
     Indication: Product used for unknown indication
     Dosage: UNK
  3. DEXAMETHASONE [Suspect]
     Active Substance: DEXAMETHASONE
     Indication: Product used for unknown indication
     Dosage: UNK
  4. PREDNISONE [Concomitant]
     Active Substance: PREDNISONE
     Dosage: UNK
  5. Salofalk [Concomitant]
     Dosage: 1000 MILLIGRAM, BID
     Dates: start: 2014
  6. NIVOLUMAB [Concomitant]
     Active Substance: NIVOLUMAB
     Dosage: UNK
  7. TYLENOL [Concomitant]
     Active Substance: ACETAMINOPHEN
     Dosage: UNK
  8. PSYLLIUM [Concomitant]
     Active Substance: PLANTAGO SEED
     Dosage: UNK UNK, QD
  9. PANTOPRAZOLE [Concomitant]
     Active Substance: PANTOPRAZOLE
     Dosage: 40 MILLIGRAM, QD
  10. Reactine [Concomitant]
     Dosage: UNK

REACTIONS (15)
  - Brain neoplasm [Unknown]
  - Neoplasm malignant [Unknown]
  - Colitis ulcerative [Unknown]
  - Diarrhoea [Unknown]
  - Gastrooesophageal reflux disease [Unknown]
  - Large intestine polyp [Unknown]
  - Tendon disorder [Unknown]
  - Blood creatinine increased [Unknown]
  - Arthritis enteropathic [Unknown]
  - Fibromyalgia [Unknown]
  - Osteoarthritis [Unknown]
  - Stomatitis [Unknown]
  - Rash pruritic [Recovered/Resolved]
  - Rectal prolapse [Unknown]
  - Nausea [Unknown]
